FAERS Safety Report 12900201 (Version 1)
Quarter: 2016Q4

REPORT INFORMATION
  Report Type: Spontaneous
  Country: US (occurrence: US)
  Receive Date: 20161101
  Receipt Date: 20161101
  Transmission Date: 20170207
  Serious: Yes (Other)
  Sender: FDA-Public Use
  Company Number: US-ELI_LILLY_AND_COMPANY-US201610010187

PATIENT
  Sex: Male

DRUGS (2)
  1. AXIRON [Suspect]
     Active Substance: TESTOSTERONE
     Indication: HYPOGONADISM
     Dosage: UNK, UNKNOWN
     Route: 065
     Dates: start: 20160801, end: 20161014
  2. IRON [Concomitant]
     Active Substance: IRON
     Indication: IRON DEFICIENCY
     Dosage: UNK, 2/M
     Route: 065

REACTIONS (1)
  - Polycythaemia [Not Recovered/Not Resolved]

NARRATIVE: CASE EVENT DATE: 20161014
